FAERS Safety Report 10732724 (Version 1)
Quarter: 2015Q1

REPORT INFORMATION
  Report Type: Spontaneous
  Country: JP (occurrence: JP)
  Receive Date: 20150123
  Receipt Date: 20150123
  Transmission Date: 20150721
  Serious: Yes (Other)
  Sender: FDA-Public Use
  Company Number: JP-CIPLA LTD.-2015JP00612

PATIENT

DRUGS (2)
  1. PACLITAXEL. [Suspect]
     Active Substance: PACLITAXEL
     Indication: UTERINE CANCER
     Dosage: 175 MG/M2 OVER 3 HOURS ON DAY 1 EVERY 21 DAYS
  2. CARBOPLATIN. [Suspect]
     Active Substance: CARBOPLATIN
     Indication: UTERINE CANCER
     Dosage: AREA UNDER THE CURVE EQUALS TO 6 MG/ML/MIN, OVER 30 MINUTES ON DAY 1 EVERY 21 DAYS

REACTIONS (1)
  - Hepatotoxicity [Unknown]
